FAERS Safety Report 8964899 (Version 1)
Quarter: 2012Q4

REPORT INFORMATION
  Report Type: 
  Country: US (occurrence: US)
  Receive Date: 20121214
  Receipt Date: 20121214
  Transmission Date: 20130627
  Serious: Yes (Other)
  Sender: FDA-Public Use
  Company Number: US-BAYER-2012-129278

PATIENT
  Sex: Female

DRUGS (1)
  1. ALEVE GELCAP [Suspect]
     Indication: HEADACHE
     Dosage: 1 DF, QD
     Route: 048
     Dates: start: 20121204, end: 20121205

REACTIONS (2)
  - Limb injury [Recovered/Resolved]
  - Haemorrhagic diathesis [Recovered/Resolved]
